FAERS Safety Report 9232124 (Version 6)
Quarter: 2013Q3

REPORT INFORMATION
  Report Type: Spontaneous
  Country: US (occurrence: US)
  Receive Date: 20130415
  Receipt Date: 20130724
  Transmission Date: 20140515
  Serious: Yes (Hospitalization, Other)
  Sender: FDA-Public Use
  Company Number: US-PFIZER INC-2013100658

PATIENT
  Age: 59 Year
  Sex: Female
  Weight: 61.22 kg

DRUGS (5)
  1. VFEND [Suspect]
     Indication: INFECTION
     Dosage: 250 MG, 2X/DAY (EVERY 12 HOURS)
     Route: 042
     Dates: start: 201207
  2. VFEND [Interacting]
     Dosage: 250 MG, UNK
     Dates: start: 20120912
  3. VORICONAZOLE [Interacting]
     Indication: INFECTION
     Dosage: UNK
     Route: 042
     Dates: start: 201207
  4. ACYCLOVIR [Interacting]
     Dosage: UNK
  5. CEPHALEXIN [Concomitant]
     Dosage: UNK

REACTIONS (7)
  - Hallucination [Recovered/Resolved]
  - Hallucination, visual [Recovered/Resolved]
  - Retinal haemorrhage [Recovered/Resolved]
  - Oral infection [Unknown]
  - Drug dose omission [Unknown]
  - Drug level decreased [Unknown]
  - Drug interaction [Unknown]
